FAERS Safety Report 23579470 (Version 1)
Quarter: 2024Q1

REPORT INFORMATION
  Report Type: Spontaneous
  Country: FR (occurrence: FR)
  Receive Date: 20240229
  Receipt Date: 20240229
  Transmission Date: 20240410
  Serious: Yes (Other)
  Sender: FDA-Public Use
  Company Number: FR-AFSSAPS-AVNT2023000926

PATIENT
  Age: 38 Year
  Sex: Male

DRUGS (2)
  1. MORPHINE [Suspect]
     Active Substance: MORPHINE
     Indication: Product used for unknown indication
     Dosage: MAX 70 MG/J
     Route: 040
     Dates: start: 2009
  2. CANNABIS SATIVA SUBSP. INDICA TOP [Suspect]
     Active Substance: CANNABIS SATIVA SUBSP. INDICA TOP
     Indication: Product used for unknown indication
     Dosage: A FEW JOINTS IN THE EVENING
     Route: 055
     Dates: start: 2008

REACTIONS (2)
  - Drug dependence [Not Recovered/Not Resolved]
  - Substance use disorder [Not Recovered/Not Resolved]
